FAERS Safety Report 8951687 (Version 1)
Quarter: 2012Q4

REPORT INFORMATION
  Report Type: 
  Country: US (occurrence: US)
  Receive Date: 20121204
  Receipt Date: 20121204
  Transmission Date: 20130627
  Serious: No
  Sender: FDA-Public Use
  Company Number: US-009507513-1212USA000458

PATIENT
  Age: 63 Year
  Sex: Female

DRUGS (3)
  1. NASONEX [Suspect]
     Indication: HYPERSENSITIVITY
  2. FEXOFENADINE HYDROCHLORIDE [Concomitant]
  3. LIPITOR [Concomitant]

REACTIONS (2)
  - Ear discomfort [Unknown]
  - Dry throat [Unknown]
